FAERS Safety Report 10148004 (Version 1)
Quarter: 2014Q2

REPORT INFORMATION
  Report Type: Spontaneous
  Country: US (occurrence: US)
  Receive Date: 20140501
  Receipt Date: 20140501
  Transmission Date: 20141212
  Serious: No
  Sender: FDA-Public Use
  Company Number: US-AMGEN-USASP2014024231

PATIENT
  Age: 53 Year
  Sex: Female

DRUGS (1)
  1. ENBREL [Suspect]
     Indication: RHEUMATOID ARTHRITIS
     Dosage: 40 MG, QWK
     Route: 065
     Dates: start: 20120607

REACTIONS (6)
  - Local swelling [Not Recovered/Not Resolved]
  - Erythema [Not Recovered/Not Resolved]
  - Arthropod bite [Not Recovered/Not Resolved]
  - Bronchitis [Recovered/Resolved]
  - Sinusitis [Recovered/Resolved]
  - Ear infection [Recovered/Resolved]
